FAERS Safety Report 7654803-0 (Version None)
Quarter: 2011Q3

REPORT INFORMATION
  Report Type: 
  Country: None (occurrence: None)
  Receive Date: 20110728
  Receipt Date: 20110214
  Transmission Date: 20111222
  Serious: Yes (Hospitalization)
  Sender: FDA-Public Use
  Company Number: 2011SP006879

PATIENT
  Age: 47 Year
  Sex: Female
  Weight: 106.1417 kg

DRUGS (4)
  1. TRI-SPRINTEC [Concomitant]
  2. INTRON A [Suspect]
     Indication: MALIGNANT MELANOMA
     Dosage: 5 DF;QW;IV
     Route: 042
     Dates: start: 20100501, end: 20100601
  3. INTRON A [Suspect]
     Dosage: 18.4 MIU;TIW;SC
     Route: 058
     Dates: start: 20100601, end: 20110206
  4. TYLENOL-500 [Concomitant]

REACTIONS (16)
  - IDIOPATHIC THROMBOCYTOPENIC PURPURA [None]
  - UPPER RESPIRATORY TRACT INFECTION [None]
  - RASH [None]
  - ALOPECIA [None]
  - PRURITUS [None]
  - DRY EYE [None]
  - ASTHENIA [None]
  - NAUSEA [None]
  - DIARRHOEA [None]
  - HEPATIC ENZYME INCREASED [None]
  - PYREXIA [None]
  - HEADACHE [None]
  - INFLUENZA LIKE ILLNESS [None]
  - ARTHRALGIA [None]
  - FATIGUE [None]
  - MYALGIA [None]
